FAERS Safety Report 9352318 (Version 1)
Quarter: 2013Q2

REPORT INFORMATION
  Report Type: Spontaneous
  Country: US (occurrence: US)
  Receive Date: 20130617
  Receipt Date: 20130617
  Transmission Date: 20140414
  Serious: No
  Sender: FDA-Public Use
  Company Number: US-PFIZER INC-2013180239

PATIENT
  Age: 46 Year
  Sex: Female
  Weight: 73.02 kg

DRUGS (4)
  1. EFFEXOR XR [Suspect]
     Indication: ACTIVITIES OF DAILY LIVING IMPAIRED
     Dosage: 150 MG, 1X/DAY
     Route: 048
  2. EFFEXOR XR [Suspect]
     Indication: THINKING ABNORMAL
     Dosage: 225 MG, 1X/DAY
     Route: 048
  3. EFFEXOR XR [Suspect]
     Indication: DEPRESSION
     Dosage: UNK
     Route: 048
  4. LOVASTATIN [Concomitant]
     Indication: BLOOD CHOLESTEROL ABNORMAL
     Dosage: 40 MG, 1X/DAY

REACTIONS (2)
  - Dyspnoea [Unknown]
  - Weight increased [Unknown]
